FAERS Safety Report 21296836 (Version 1)
Quarter: 2022Q3

REPORT INFORMATION
  Report Type: Spontaneous
  Country: US (occurrence: None)
  Receive Date: 20220903
  Receipt Date: 20220903
  Transmission Date: 20221027
  Serious: No
  Sender: FDA-Public Use
  Company Number: None

PATIENT
  Age: 55 Year
  Sex: Female
  Weight: 85.5 kg

DRUGS (6)
  1. PAXLOVID [Suspect]
     Active Substance: NIRMATRELVIR\RITONAVIR
     Indication: COVID-19 treatment
     Dosage: OTHER QUANTITY : 3 CAPSULE(S);?FREQUENCY : TWICE A DAY;?
     Route: 048
     Dates: start: 20220612, end: 20220614
  2. SYNTHROID [Concomitant]
     Active Substance: LEVOTHYROXINE SODIUM
  3. BUPROPION [Concomitant]
     Active Substance: BUPROPION
  4. MONTELUKAST [Concomitant]
     Active Substance: MONTELUKAST SODIUM
  5. 5000 ui [Concomitant]
  6. VITAMIN D [Concomitant]
     Active Substance: VITAMIN D NOS

REACTIONS (4)
  - Tongue discolouration [None]
  - Tongue discomfort [None]
  - Oral candidiasis [None]
  - Taste disorder [None]

NARRATIVE: CASE EVENT DATE: 20220614
